FAERS Safety Report 9632318 (Version 4)
Quarter: 2014Q1

REPORT INFORMATION
  Report Type: Report from Study
  Country: US (occurrence: US)
  Receive Date: 20131018
  Receipt Date: 20140226
  Transmission Date: 20141002
  Serious: Yes (Other)
  Sender: FDA-Public Use
  Company Number: US-JNJFOC-20131007821

PATIENT
  Age: 52 Year
  Sex: Female
  Weight: 102.06 kg

DRUGS (35)
  1. REMICADE [Suspect]
     Indication: RHEUMATOID ARTHRITIS
     Dosage: LOADING DOSE
     Route: 042
     Dates: start: 20130717
  2. REMICADE [Suspect]
     Indication: RHEUMATOID ARTHRITIS
     Dosage: THE PATIENT HAD RECEIVED 2 DOSES OF INFLIXIMAB INFUSIONS
     Route: 042
     Dates: start: 20130822
  3. TRAMADOL [Concomitant]
     Indication: PAIN
     Dosage: EVERY 8 HOURS AS NECESSARY
     Route: 065
  4. PREMARIN [Concomitant]
     Route: 065
  5. PATADAY [Concomitant]
     Dosage: 1 DROP EVERY MORNING
     Route: 065
  6. METOPROLOL SUCCINATE [Concomitant]
     Indication: HYPERTENSION
     Route: 065
  7. LOSARTAN POTASSIUM [Concomitant]
     Indication: HYPERTENSION
     Route: 048
  8. CELEBREX [Concomitant]
     Indication: RHEUMATOID ARTHRITIS
     Route: 065
  9. CLOPIDOGREL [Concomitant]
     Route: 065
  10. CRESTOR [Concomitant]
     Indication: BLOOD CHOLESTEROL INCREASED
     Route: 065
  11. HYDROCODONE, ACETAMINOPHEN [Concomitant]
     Dosage: 5-325 1 TABLET EVERY 12 HOURS AS NEEDED
     Route: 065
  12. FISH OIL [Concomitant]
     Route: 065
  13. VIACTIV WITH D [Concomitant]
     Dosage: 500 IU-125%
  14. ZANTAC [Concomitant]
     Route: 065
  15. DIETHYLPROPION [Concomitant]
     Route: 065
  16. DIETHYLPROPION [Concomitant]
     Route: 065
  17. FOLIC ACID [Concomitant]
     Route: 065
  18. SUCRALFATE [Concomitant]
     Route: 065
  19. LEVOTHYROXINE [Concomitant]
     Indication: HYPOTHYROIDISM
     Dosage: HALF A TABLET A DAY
     Route: 065
  20. LEVOTHYROXINE [Concomitant]
     Indication: HYPOTHYROIDISM
     Route: 065
  21. PRESERVISION AREDS SOFT GEL [Concomitant]
     Route: 065
  22. FLUOROMETHOLONE [Concomitant]
     Dosage: FOR 7 DAYS
     Route: 065
  23. PAROXETINE [Concomitant]
     Route: 065
  24. ABILIFY [Concomitant]
     Route: 065
  25. FUROSEMIDE [Concomitant]
     Dosage: 1 TABLET AS NEEDED
     Route: 065
  26. NITROGLYCERINE [Concomitant]
     Dosage: 1 TO 2 SPRAYS AS NEEDED
     Route: 065
  27. METHOTREXATE [Concomitant]
     Indication: RHEUMATOID ARTHRITIS
     Route: 065
  28. METHOTREXATE [Concomitant]
     Indication: RHEUMATOID ARTHRITIS
     Dosage: 0.8 ML ONCE A WEEK (SUNDAYS)
     Route: 065
  29. DICYCLOMINE [Concomitant]
     Dosage: 1 TABLET BEFORE MEALS
     Route: 065
  30. EXCEDRIN MIGRAINE [Concomitant]
     Dosage: AS NEEDED
     Route: 065
  31. VIVELLE-DOT [Concomitant]
     Indication: OESTROGEN REPLACEMENT THERAPY
     Route: 065
  32. VITAMIN D3 [Concomitant]
     Route: 065
  33. VITAMIN D3 [Concomitant]
     Route: 065
  34. SULFASALAZINE [Concomitant]
     Indication: RHEUMATOID ARTHRITIS
     Route: 065
  35. OMNARIS [Concomitant]
     Route: 045

REACTIONS (6)
  - Local swelling [Unknown]
  - Poor peripheral circulation [Unknown]
  - Infusion related reaction [Recovered/Resolved]
  - Influenza [Recovered/Resolved]
  - Back pain [Recovered/Resolved]
  - Rheumatoid arthritis [Recovered/Resolved]
